FAERS Safety Report 17656350 (Version 1)
Quarter: 2020Q2

REPORT INFORMATION
  Report Type: Spontaneous
  Country: EE (occurrence: EE)
  Receive Date: 20200410
  Receipt Date: 20200410
  Transmission Date: 20200713
  Serious: Yes (Death, Hospitalization)
  Sender: FDA-Public Use
  Company Number: EE-ASTRAZENECA-2020SE49438

PATIENT
  Age: 69 Year
  Sex: Male
  Weight: 104 kg

DRUGS (1)
  1. IMFINZI [Suspect]
     Active Substance: DURVALUMAB
     Indication: LUNG NEOPLASM MALIGNANT
     Route: 042
     Dates: start: 20200102, end: 20200228

REACTIONS (3)
  - Pulmonary fibrosis [Fatal]
  - Pneumonitis [Fatal]
  - Pneumonia [Fatal]

NARRATIVE: CASE EVENT DATE: 20200304
